FAERS Safety Report 6248095-7 (Version None)
Quarter: 2009Q2

REPORT INFORMATION
  Report Type: 
  Country: None (occurrence: None)
  Receive Date: 20090629
  Receipt Date: 20071227
  Transmission Date: 20091009
  Serious: Yes (Other)
  Sender: FDA-Public Use
  Company Number: US-ASTRAZENECA-2006UW09520

PATIENT
  Age: 16497 Day
  Sex: Male
  Weight: 120.2 kg

DRUGS (17)
  1. SEROQUEL [Suspect]
     Indication: SLEEP DISORDER
     Dosage: 50-1600 MG/DAY
     Route: 048
     Dates: start: 20020325, end: 20050815
  2. SEROQUEL [Suspect]
     Indication: ANXIETY
     Dosage: 50-1600 MG/DAY
     Route: 048
     Dates: start: 20020325, end: 20050815
  3. SEROQUEL [Suspect]
     Route: 048
     Dates: start: 20020408, end: 20050801
  4. SEROQUEL [Suspect]
     Route: 048
     Dates: start: 20020408, end: 20050801
  5. STEROIDS [Concomitant]
     Indication: ILL-DEFINED DISORDER
  6. IMIPRAMINE [Concomitant]
  7. NEURONTIN [Concomitant]
     Dates: start: 20020114
  8. BUPROPION HCL [Concomitant]
  9. TOPAMAX [Concomitant]
  10. CLONAZEPAM [Concomitant]
  11. REMERON [Concomitant]
     Dates: start: 20020114
  12. BUSPIRONE HCL [Concomitant]
  13. XANAX [Concomitant]
     Dates: start: 19930101, end: 20010101
  14. RISPERDAL [Concomitant]
     Dates: start: 20010701, end: 20010901
  15. ZYPREXA [Concomitant]
     Dates: start: 20010801, end: 20011001
  16. KLONOPIN [Concomitant]
     Dates: start: 20020128
  17. DEPAKOTE [Concomitant]
     Route: 048
     Dates: start: 20020114

REACTIONS (7)
  - FOOD CRAVING [None]
  - HYPERGLYCAEMIA [None]
  - MAJOR DEPRESSION [None]
  - POLLAKIURIA [None]
  - SUICIDAL IDEATION [None]
  - TYPE 2 DIABETES MELLITUS [None]
  - WEIGHT INCREASED [None]
